FAERS Safety Report 23474827 (Version 1)
Quarter: 2024Q1

REPORT INFORMATION
  Report Type: Report from Study
  Country: US (occurrence: US)
  Receive Date: 20240204
  Receipt Date: 20240204
  Transmission Date: 20240410
  Serious: Yes (Other)
  Sender: FDA-Public Use
  Company Number: US-EXELIXIS-CABO-23067444

PATIENT
  Age: 67 Year
  Sex: Male

DRUGS (4)
  1. CABOMETYX [Suspect]
     Active Substance: CABOZANTINIB S-MALATE
     Indication: Renal cell carcinoma
     Dosage: 40 MG, QD
     Route: 048
     Dates: start: 20230807
  2. METFORMIN [Concomitant]
     Active Substance: METFORMIN HYDROCHLORIDE
  3. GLIPIZIDE [Concomitant]
     Active Substance: GLIPIZIDE
  4. ELIQUIS [Concomitant]
     Active Substance: APIXABAN

REACTIONS (10)
  - Dehydration [Recovering/Resolving]
  - Lip blister [Unknown]
  - Blister [Unknown]
  - Blood pressure increased [Recovered/Resolved]
  - Blood glucose increased [Recovering/Resolving]
  - Impaired healing [Unknown]
  - Diarrhoea [Recovered/Resolved]
  - Stomatitis [Recovering/Resolving]
  - Cheilitis [Unknown]
  - Pruritus [Unknown]

NARRATIVE: CASE EVENT DATE: 20230801
